FAERS Safety Report 4954112-4 (Version None)
Quarter: 2006Q1

REPORT INFORMATION
  Report Type: 
  Country: None (occurrence: None)
  Receive Date: 20060327
  Receipt Date: 20060316
  Transmission Date: 20060701
  Serious: Yes (Life-Threatening, Hospitalization, Other)
  Sender: FDA-Public Use
  Company Number: RO-GLAXOSMITHKLINE-B0417003A

PATIENT
  Age: 11 Year
  Sex: Male

DRUGS (6)
  1. LAMICTAL [Suspect]
     Route: 048
     Dates: start: 20060201, end: 20060312
  2. VALPROATE SODIUM [Concomitant]
     Dosage: 900MG PER DAY
     Route: 048
     Dates: start: 20050901
  3. CARBAMAZEPINE [Concomitant]
     Route: 065
     Dates: start: 20040910
  4. NEURONTIN [Concomitant]
  5. DEPAKENE [Concomitant]
  6. DIAZEPAM [Concomitant]

REACTIONS (9)
  - ANOREXIA [None]
  - ANXIETY [None]
  - DYSPHAGIA [None]
  - GENERAL PHYSICAL HEALTH DETERIORATION [None]
  - PRURITUS [None]
  - PYREXIA [None]
  - RASH GENERALISED [None]
  - SKIN EXFOLIATION [None]
  - STEVENS-JOHNSON SYNDROME [None]
